FAERS Safety Report 23420582 (Version 1)
Quarter: 2024Q1

REPORT INFORMATION
  Report Type: Spontaneous
  Country: FR (occurrence: FR)
  Receive Date: 20240119
  Receipt Date: 20240119
  Transmission Date: 20240409
  Serious: Yes (Hospitalization)
  Sender: FDA-Public Use
  Company Number: FR-ROCHE-3432832

PATIENT
  Age: 74 Year
  Sex: Female

DRUGS (8)
  1. ALLOPURINOL [Suspect]
     Active Substance: ALLOPURINOL
     Indication: Hyperuricaemia
     Dosage: 100.000MG QD
     Route: 048
     Dates: start: 20230830, end: 20230919
  2. BACTRIM [Suspect]
     Active Substance: SULFAMETHOXAZOLE\TRIMETHOPRIM
     Indication: Antiviral prophylaxis
     Dosage: 400.000MG QD
     Route: 048
     Dates: start: 20230830, end: 20230920
  3. LANSOPRAZOLE [Suspect]
     Active Substance: LANSOPRAZOLE
     Indication: Gastrointestinal disorder
     Dosage: 15.000MG QD
     Route: 048
     Dates: start: 20230830, end: 20230920
  4. RITUXIMAB [Suspect]
     Active Substance: RITUXIMAB
     Dosage: 100.000MG
     Route: 042
     Dates: start: 20230828, end: 20230828
  5. RITUXIMAB [Suspect]
     Active Substance: RITUXIMAB
     Dosage: 500.000MG
     Route: 042
     Dates: start: 20230829, end: 20230829
  6. RITUXIMAB [Suspect]
     Active Substance: RITUXIMAB
     Indication: Marginal zone lymphoma recurrent
     Dosage: 600.000MG
     Route: 042
     Dates: start: 20230912, end: 20230912
  7. RITUXIMAB [Suspect]
     Active Substance: RITUXIMAB
     Dosage: 600.000MG
     Route: 042
     Dates: start: 20230905, end: 20230905
  8. VALACYCLOVIR HYDROCHLORIDE [Suspect]
     Active Substance: VALACYCLOVIR HYDROCHLORIDE
     Indication: Antiviral prophylaxis
     Dosage: 500.000MG QD
     Route: 048
     Dates: start: 20230830, end: 20230920

REACTIONS (1)
  - Agranulocytosis [Recovering/Resolving]

NARRATIVE: CASE EVENT DATE: 20230919
